FAERS Safety Report 19005557 (Version 2)
Quarter: 2021Q3

REPORT INFORMATION
  Report Type: Report from Study
  Country: US (occurrence: US)
  Receive Date: 20210313
  Receipt Date: 20210929
  Transmission Date: 20211014
  Serious: Yes (Death, Life-Threatening, Other)
  Sender: FDA-Public Use
  Company Number: NVSC2021US055015

PATIENT
  Age: 80 Year
  Sex: Male

DRUGS (3)
  1. CYCLOPHOSPHAMIDE. [Concomitant]
     Active Substance: CYCLOPHOSPHAMIDE
     Indication: CHEMOTHERAPY
     Dosage: UNK
     Route: 065
  2. FLUDARABINE [Concomitant]
     Active Substance: FLUDARABINE PHOSPHATE
     Indication: CHEMOTHERAPY
     Dosage: UNK
     Route: 065
  3. KYMRIAH [Suspect]
     Active Substance: TISAGENLECLEUCEL
     Indication: DIFFUSE LARGE B-CELL LYMPHOMA
     Dosage: UNK UNK, ONCE/SINGLE
     Route: 042
     Dates: start: 20201102

REACTIONS (16)
  - Status epilepticus [Unknown]
  - Diffuse large B-cell lymphoma [Unknown]
  - Cytopenia [Unknown]
  - White blood cell count decreased [Unknown]
  - Tremor [Unknown]
  - Haematocrit decreased [Unknown]
  - Thrombocytopenia [Unknown]
  - Hypogammaglobulinaemia [Unknown]
  - Lymphocyte count decreased [Unknown]
  - Respiratory failure [Fatal]
  - Neurotoxicity [Unknown]
  - Cardiac arrest [Unknown]
  - Aphasia [Unknown]
  - Depressed level of consciousness [Unknown]
  - Serratia infection [Unknown]
  - Haemoglobin decreased [Unknown]
